FAERS Safety Report 16537937 (Version 1)
Quarter: 2019Q3

REPORT INFORMATION
  Report Type: Spontaneous
  Country: US (occurrence: US)
  Receive Date: 20190708
  Receipt Date: 20190708
  Transmission Date: 20191004
  Serious: No
  Sender: FDA-Public Use
  Company Number: US-SA-2019SA174533

PATIENT

DRUGS (2)
  1. LOVENOX [Suspect]
     Active Substance: ENOXAPARIN SODIUM
  2. OXYTETRACYCLINE [Suspect]
     Active Substance: OXYTETRACYCLINE

REACTIONS (2)
  - Rash [Unknown]
  - Urticaria [Unknown]
